FAERS Safety Report 11391815 (Version 1)
Quarter: 2015Q3

REPORT INFORMATION
  Report Type: Spontaneous
  Country: US (occurrence: US)
  Receive Date: 20150818
  Receipt Date: 20150818
  Transmission Date: 20151125
  Serious: No
  Sender: FDA-Public Use
  Company Number: US-PFIZER INC-2015274672

PATIENT
  Sex: Female

DRUGS (5)
  1. AMOXICILLIN. [Suspect]
     Active Substance: AMOXICILLIN
  2. BENZYLPENICILLIN POTASSIUM [Suspect]
     Active Substance: PENICILLIN G POTASSIUM
  3. NABUMETONE. [Suspect]
     Active Substance: NABUMETONE
  4. ASPIRIN. [Suspect]
     Active Substance: ASPIRIN
  5. IBUPROFEN SODIUM [Suspect]
     Active Substance: IBUPROFEN SODIUM

REACTIONS (1)
  - Drug hypersensitivity [Not Recovered/Not Resolved]
